FAERS Safety Report 9853934 (Version 2)
Quarter: 2014Q1

REPORT INFORMATION
  Report Type: Spontaneous
  Country: US (occurrence: US)
  Receive Date: 20140129
  Receipt Date: 20140214
  Transmission Date: 20141002
  Serious: No
  Sender: FDA-Public Use
  Company Number: US-PFIZER INC-2014024682

PATIENT
  Age: 66 Year
  Sex: Female
  Weight: 62.13 kg

DRUGS (5)
  1. PANTOPRAZOLE [Suspect]
     Dosage: 40 MG, 2X/DAY
     Route: 048
  2. PANTOPRAZOLE [Suspect]
     Dosage: 40 MG, DAILY
     Route: 048
  3. PREMARIN [Suspect]
     Dosage: 0.625 MG, DAILY
     Route: 048
     Dates: start: 1996, end: 2013
  4. ALPRAZOLAM [Concomitant]
     Dosage: 0.25 MG, DAILY
  5. SERTRALINE HYDROCHLORIDE [Concomitant]
     Dosage: 100 MG, DAILY

REACTIONS (4)
  - Osteoporosis [Unknown]
  - Hypertrichosis [Unknown]
  - Fatigue [Unknown]
  - Intentional drug misuse [Unknown]
